FAERS Safety Report 8624098-X (Version None)
Quarter: 2012Q3

REPORT INFORMATION
  Report Type: 
  Country: None (occurrence: None)
  Receive Date: 20120827
  Receipt Date: 20120815
  Transmission Date: 20120928
  Serious: Yes (Hospitalization, Other)
  Sender: FDA-Public Use
  Company Number: US-MERCK-1103USA00992

PATIENT

DRUGS (5)
  1. FOSAMAX [Suspect]
     Indication: OSTEOPENIA
     Dosage: 10 MG, QD
     Route: 048
     Dates: start: 19950101, end: 20001201
  2. FOSAMAX [Suspect]
     Dosage: 70 MG, QW
     Route: 048
     Dates: start: 20080303, end: 20080801
  3. CALCIUM (UNSPECIFIED) [Concomitant]
     Indication: OSTEOPENIA
     Dosage: 1200 MG, QD
     Dates: start: 20060101
  4. FOSAMAX [Suspect]
     Dosage: 70 MG, QW
     Route: 048
     Dates: start: 20010101, end: 20080302
  5. VITAMIN D [Concomitant]
     Indication: OSTEOPENIA
     Dosage: 2000 IU, QD
     Dates: start: 20090101

REACTIONS (28)
  - BREAST CANCER [None]
  - ATRIAL FIBRILLATION [None]
  - VARICOSE VEIN [None]
  - INTERVERTEBRAL DISC DEGENERATION [None]
  - IMPLANT SITE EFFUSION [None]
  - SICK SINUS SYNDROME [None]
  - FRACTURE [None]
  - LOW TURNOVER OSTEOPATHY [None]
  - MITRAL VALVE INCOMPETENCE [None]
  - SYNOVIAL CYST [None]
  - TOOTH DISORDER [None]
  - SPINAL COLUMN STENOSIS [None]
  - BONE PAIN [None]
  - SPINAL OSTEOARTHRITIS [None]
  - FALL [None]
  - ARTHRITIS [None]
  - HAEMORRHOIDS [None]
  - SCOLIOSIS [None]
  - CATARACT [None]
  - LUNG NEOPLASM [None]
  - LOWER LIMB FRACTURE [None]
  - BREAST MASS [None]
  - SUPRAVENTRICULAR EXTRASYSTOLES [None]
  - PAIN IN EXTREMITY [None]
  - FEMUR FRACTURE [None]
  - FATIGUE [None]
  - INSOMNIA [None]
  - LUMBAR RADICULOPATHY [None]
